FAERS Safety Report 10716668 (Version 1)
Quarter: 2015Q1

REPORT INFORMATION
  Report Type: Spontaneous
  Country: PL (occurrence: PL)
  Receive Date: 20150116
  Receipt Date: 20150116
  Transmission Date: 20150721
  Serious: Yes (Other)
  Sender: FDA-Public Use
  Company Number: PL-PFIZER INC-2015017034

PATIENT
  Age: 81 Year
  Sex: Male

DRUGS (4)
  1. SUNITINIB MALATE [Suspect]
     Active Substance: SUNITINIB MALATE
     Dosage: 37.5 MG, CYCLIC
     Dates: start: 201102, end: 201206
  2. SUNITINIB MALATE [Suspect]
     Active Substance: SUNITINIB MALATE
     Dosage: 25 MG, CYCLIC
     Dates: start: 201208
  3. SUNITINIB MALATE [Suspect]
     Active Substance: SUNITINIB MALATE
     Dosage: 12.5 MG, CYCLIC
  4. SUNITINIB MALATE [Suspect]
     Active Substance: SUNITINIB MALATE
     Indication: CLEAR CELL RENAL CELL CARCINOMA
     Dosage: 50 MG, CYCLIC (ONCE DAILY IN SIX-WEEK CYCLES ACCORDING TO A FOUR-WEEK ON/TWO-WEEK OFF)
     Route: 048
     Dates: start: 200512

REACTIONS (4)
  - Gastric haemorrhage [Unknown]
  - Second primary malignancy [Unknown]
  - Chronic myeloid leukaemia [Unknown]
  - Renal failure [Unknown]

NARRATIVE: CASE EVENT DATE: 201008
